FAERS Safety Report 5012697-6 (Version None)
Quarter: 2006Q2

REPORT INFORMATION
  Report Type: 
  Country: None (occurrence: None)
  Receive Date: 20060530
  Receipt Date: 20060510
  Transmission Date: 20061013
  Serious: Yes (Hospitalization)
  Sender: FDA-Public Use
  Company Number: US-RB-3271-2006

PATIENT
  Sex: Female
  Weight: 58.57 kg

DRUGS (10)
  1. SUBOXONE [Suspect]
     Route: 060
     Dates: start: 20060117, end: 20060124
  2. SUBOXONE [Suspect]
     Route: 060
     Dates: start: 20060125, end: 20060419
  3. SUBOXONE [Suspect]
     Route: 060
     Dates: start: 20060420, end: 20060508
  4. GABAPENTIN [Concomitant]
     Dosage: ON FOR THE LAST 5 YEARS
     Route: 048
  5. GABAPENTIN [Concomitant]
     Dosage: ON FOR THE LAST 5 YEARS
     Route: 048
  6. MORPHINE [Concomitant]
     Indication: PAIN
     Route: 042
     Dates: start: 20060424, end: 20060424
  7. PERCOCET [Concomitant]
     Indication: PAIN
     Route: 048
     Dates: start: 20060425, end: 20060425
  8. PETHIDINE HYDROCHLORIDE [Concomitant]
     Indication: PAIN
     Dates: start: 20060424, end: 20060424
  9. HYDROMORPHONE HYDROCHLORIDE [Concomitant]
     Indication: PAIN
  10. METHADONE HCL [Concomitant]
     Indication: PAIN
     Dates: start: 20060509, end: 20060509

REACTIONS (5)
  - HAEMATOCHEZIA [None]
  - INSOMNIA [None]
  - NAUSEA [None]
  - NEPHROLITHIASIS [None]
  - PAIN [None]
